FAERS Safety Report 4325593-4 (Version None)
Quarter: 2004Q1

REPORT INFORMATION
  Report Type: 
  Country: None (occurrence: None)
  Receive Date: 20040323
  Receipt Date: 20040311
  Transmission Date: 20041129
  Serious: Yes (Death)
  Sender: FDA-Public Use
  Company Number: 2004-DE-01208GD

PATIENT
  Age: 46 Year
  Sex: Female

DRUGS (5)
  1. CYCLOPHOSPHAMIDE [Suspect]
     Indication: RAYNAUD'S PHENOMENON
  2. PREDNISONE [Suspect]
     Indication: RAYNAUD'S PHENOMENON
  3. TICLOPIDINE (TICLOPIDINE) [Suspect]
     Indication: RAYNAUD'S PHENOMENON
  4. PENTOXYPHYLLINE (PENTOXYFYLLINE) [Suspect]
     Indication: RAYNAUD'S PHENOMENON
  5. BUSULPHAN (BUSULFAN) [Suspect]
     Indication: RAYNAUD'S PHENOMENON

REACTIONS (2)
  - COMPLICATIONS OF TRANSPLANT SURGERY [None]
  - SEPSIS [None]
